FAERS Safety Report 16335774 (Version 1)
Quarter: 2019Q2

REPORT INFORMATION
  Report Type: Report from Study
  Country: EG (occurrence: EG)
  Receive Date: 20190521
  Receipt Date: 20190521
  Transmission Date: 20190711
  Serious: Yes (Other)
  Sender: FDA-Public Use
  Company Number: EG-ROCHE-2317232

PATIENT

DRUGS (5)
  1. POMALIDOMIDE [Concomitant]
     Active Substance: POMALIDOMIDE
  2. LENALIDOMIDE [Concomitant]
     Active Substance: LENALIDOMIDE
  3. LIPOSOMAL DOXORUBICIN HYDROCHLORIDE [Suspect]
     Active Substance: DOXORUBICIN HYDROCHLORIDE
     Indication: KAPOSI^S SARCOMA
     Route: 065
  4. INTERFERON ALFA-2A [Concomitant]
     Active Substance: INTERFERON ALFA-2A
  5. BEVACIZUMAB. [Suspect]
     Active Substance: BEVACIZUMAB
     Indication: KAPOSI^S SARCOMA
     Route: 065

REACTIONS (5)
  - Hypertension [Unknown]
  - Ischaemia [Unknown]
  - Gastrointestinal haemorrhage [Unknown]
  - Neutropenia [Unknown]
  - Infection [Unknown]
